FAERS Safety Report 7424615-1 (Version None)
Quarter: 2011Q2

REPORT INFORMATION
  Report Type: 
  Country: None (occurrence: None)
  Receive Date: 20110419
  Receipt Date: 20110406
  Transmission Date: 20111010
  Serious: Yes (Death, Hospitalization, Other)
  Sender: FDA-Public Use
  Company Number: US-CELGENEUS-163-21880-11030284

PATIENT
  Sex: Male

DRUGS (23)
  1. METFORMIN HCL [Concomitant]
     Dosage: 500 MILLIGRAM
     Route: 065
  2. PLAQUENIL [Concomitant]
     Dosage: 200 MILLIGRAM
     Route: 065
  3. REVLIMID [Suspect]
     Indication: MYELODYSPLASTIC SYNDROME
     Dosage: 10 MILLIGRAM
     Route: 048
     Dates: start: 20110131, end: 20110214
  4. FOLIC ACID [Concomitant]
     Route: 065
  5. VITAMIN D [Concomitant]
     Route: 065
  6. LOVENOX [Concomitant]
     Route: 065
  7. AMBIEN [Concomitant]
     Route: 065
  8. SULFASALAZINE [Concomitant]
     Dosage: 500 MILLIGRAM
     Route: 048
  9. SIMVASTATIN [Concomitant]
     Dosage: 40 MILLIGRAM
     Route: 065
  10. ACETAMINOPHEN [Concomitant]
     Route: 065
  11. DUONEB [Concomitant]
     Route: 065
  12. INSULIN(NOVOLOG) [Concomitant]
     Route: 065
  13. ZOFRAN [Concomitant]
     Route: 065
  14. ACTONEL [Concomitant]
     Dosage: 150 MILLIGRAM
     Route: 065
  15. DETROL LA [Concomitant]
     Route: 065
  16. WHOLE BLOOD [Concomitant]
     Route: 051
     Dates: start: 20110201, end: 20110201
  17. LISINOPRIL [Concomitant]
     Dosage: 40 MILLIGRAM
     Route: 065
  18. MULTI-VITAMINS [Concomitant]
     Route: 065
  19. LASIX [Concomitant]
     Dosage: 20 MILLIGRAM
     Route: 065
  20. PANTOPRAZOLE [Concomitant]
     Route: 065
  21. AMLODIPINE [Concomitant]
     Dosage: 2.5 MILLIGRAM
     Route: 048
  22. ASPIRIN [Concomitant]
     Dosage: 325 MILLIGRAM
     Route: 065
  23. CALCIUM CITRATE [Concomitant]
     Route: 065

REACTIONS (2)
  - LYMPHOPROLIFERATIVE DISORDER [None]
  - PNEUMONIA [None]
